FAERS Safety Report 4873900-6 (Version None)
Quarter: 2006Q1

REPORT INFORMATION
  Report Type: 
  Country: None (occurrence: None)
  Receive Date: 20060105
  Receipt Date: 20060105
  Transmission Date: 20060701
  Serious: No
  Sender: FDA-Public Use
  Company Number: None

PATIENT
  Sex: Female
  Weight: 48.5349 kg

DRUGS (2)
  1. DILTIAZEM [Suspect]
     Indication: HEART RATE INCREASED
     Dosage: ONE PILL A DAY
  2. DILTIAZEM [Suspect]
     Indication: HYPERTENSION
     Dosage: ONE PILL A DAY

REACTIONS (3)
  - ACNE [None]
  - DRY SKIN [None]
  - RASH [None]
